FAERS Safety Report 22028783 (Version 1)
Quarter: 2023Q1

REPORT INFORMATION
  Report Type: Spontaneous
  Country: US (occurrence: US)
  Receive Date: 20230223
  Receipt Date: 20230223
  Transmission Date: 20230418
  Serious: Yes (Hospitalization, Other)
  Sender: FDA-Public Use
  Company Number: US-009507513-2302USA006430

PATIENT
  Age: 81 Year
  Sex: Female

DRUGS (4)
  1. INVANZ [Suspect]
     Active Substance: ERTAPENEM SODIUM
     Indication: Urinary tract infection
  2. OLANZAPINE [Concomitant]
     Active Substance: OLANZAPINE
     Indication: Dementia Alzheimer^s type
  3. CARBIDOPA\LEVODOPA [Concomitant]
     Active Substance: CARBIDOPA\LEVODOPA
     Indication: Parkinson^s disease
  4. MEROPENEM [Concomitant]
     Active Substance: MEROPENEM
     Indication: Urinary tract infection

REACTIONS (1)
  - Cardiac arrest [Not Recovered/Not Resolved]
